FAERS Safety Report 21464697 (Version 1)
Quarter: 2022Q4

REPORT INFORMATION
  Report Type: Spontaneous
  Country: US (occurrence: None)
  Receive Date: 20221014
  Receipt Date: 20221014
  Transmission Date: 20230112
  Serious: Yes (Death)
  Sender: FDA-Public Use
  Company Number: None

PATIENT
  Age: 62 Year
  Sex: Male
  Weight: 67.59 kg

DRUGS (10)
  1. COTELLIC [Suspect]
     Active Substance: COBIMETINIB
     Indication: Malignant melanoma
     Dosage: OTHER FREQUENCY : 21 D ON 7D OFF;?
     Route: 048
     Dates: end: 20220927
  2. ATROPINE [Concomitant]
     Active Substance: ATROPINE
  3. LACTULOSE [Concomitant]
     Active Substance: LACTULOSE
  4. LATANOPROST [Concomitant]
     Active Substance: LATANOPROST
  5. MELATONIN [Concomitant]
     Active Substance: MELATONIN
  6. NIVOLUMAB [Concomitant]
     Active Substance: NIVOLUMAB
  7. ONDANSETRON [Concomitant]
     Active Substance: ONDANSETRON
  8. PREDNISOLONE [Concomitant]
     Active Substance: PREDNISOLONE
  9. TIMOLOL [Concomitant]
     Active Substance: TIMOLOL
  10. VITAMIN C [Concomitant]
     Active Substance: ASCORBIC ACID

REACTIONS (1)
  - Death [None]

NARRATIVE: CASE EVENT DATE: 20221013
